FAERS Safety Report 9315934 (Version 5)
Quarter: 2014Q2

REPORT INFORMATION
  Report Type: Spontaneous
  Country: JP (occurrence: JP)
  Receive Date: 20130530
  Receipt Date: 20140407
  Transmission Date: 20141212
  Serious: Yes (Hospitalization)
  Sender: FDA-Public Use
  Company Number: JP-AMGEN-JPNSP2013035968

PATIENT
  Age: 82 Year
  Sex: Male
  Weight: 51 kg

DRUGS (19)
  1. ARANESP [Suspect]
     Indication: NEPHROGENIC ANAEMIA
     Dosage: 120 MUG, Q2WK
     Route: 030
     Dates: start: 20110806
  2. ARANESP [Suspect]
     Indication: RENAL FAILURE CHRONIC
  3. MIRCERA [Concomitant]
     Dosage: 200 MUG, QD
     Route: 030
     Dates: start: 20120730, end: 20120730
  4. NAUZELIN [Concomitant]
     Dosage: 10 MG, TID
     Route: 048
  5. MEDICON                            /00048102/ [Concomitant]
     Dosage: 30 MG, TID
     Route: 048
  6. MUCODYNE [Concomitant]
     Dosage: 500 MG, TID
     Route: 048
  7. ERYTHROCIN                         /00020901/ [Concomitant]
     Dosage: 100 MG, TID
     Route: 048
  8. AMARYL [Concomitant]
     Dosage: 1 MG, BID
     Route: 048
  9. AMLODIN [Concomitant]
     Dosage: 5 MG, QD
     Route: 048
  10. GASTER D [Concomitant]
     Dosage: 20 MG, QD
     Route: 048
  11. SENNOSIDE                          /00571901/ [Concomitant]
     Dosage: 24 MG, QD
     Route: 048
  12. UNIPHYL [Concomitant]
     Dosage: 200 MG, QD
     Route: 048
  13. FLIVAS [Concomitant]
     Dosage: 75 MG, QD
     Route: 048
  14. JANUVIA [Concomitant]
     Dosage: 100 MG, QD
     Route: 048
  15. DRAMAMINE [Concomitant]
     Dosage: 50 MG, QD
     Route: 048
  16. LAC-B [Concomitant]
     Dosage: 1 G, TID
     Route: 048
  17. MAGNESIUM OXIDE [Concomitant]
     Dosage: 0.5 G, TID
     Route: 048
  18. DIGOSIN [Concomitant]
     Dosage: 0.125 MG, QD
     Route: 048
  19. FERROMIA [Concomitant]
     Dosage: 100 MG, QD
     Route: 048

REACTIONS (1)
  - Aplasia pure red cell [Not Recovered/Not Resolved]
